FAERS Safety Report 9788520 (Version 1)
Quarter: 2013Q4

REPORT INFORMATION
  Report Type: Spontaneous
  Country: FR (occurrence: FR)
  Receive Date: 20131230
  Receipt Date: 20131230
  Transmission Date: 20140711
  Serious: Yes (Other)
  Sender: FDA-Public Use
  Company Number: FR-TEVA-453526ISR

PATIENT
  Age: 31 Year
  Sex: Male

DRUGS (1)
  1. MINOCYCLINE [Suspect]
     Route: 065

REACTIONS (2)
  - Drug reaction with eosinophilia and systemic symptoms [Recovering/Resolving]
  - Basedow^s disease [Unknown]
